FAERS Safety Report 5657448-7 (Version None)
Quarter: 2008Q1

REPORT INFORMATION
  Report Type: 
  Country: None (occurrence: None)
  Receive Date: 20080219
  Receipt Date: 20071127
  Transmission Date: 20080703
  Serious: No
  Sender: FDA-Public Use
  Company Number: WAES 0711USA05025

PATIENT
  Age: 74 Year
  Sex: Female

DRUGS (10)
  1. JANUVIA [Suspect]
     Indication: DIABETES MELLITUS
     Dosage: 100 MG/DAILY/PO
     Route: 046
     Dates: start: 20070913
  2. COZAAR [Suspect]
  3. METFORMIN HCL [Suspect]
  4. TAB [THERAPY UNSPECIFIED] [Suspect]
  5. GLIPIZIDE [Suspect]
  6. WARFARIN SODIUM [Suspect]
  7. POTASSIUM CHLORIDE [Suspect]
  8. TAB [THERAPY UNSPECIFIED] [Suspect]
  9. ARICEPT [Suspect]
  10. [THERAPY UNSPECIFIED] [Suspect]

REACTIONS (4)
  - ASTHENIA [None]
  - BLOOD GLUCOSE DECREASED [None]
  - DIZZINESS [None]
  - PRURITUS [None]
